FAERS Safety Report 14109777 (Version 1)
Quarter: 2017Q4

REPORT INFORMATION
  Report Type: Spontaneous
  Country: US (occurrence: US)
  Receive Date: 20171020
  Receipt Date: 20171020
  Transmission Date: 20180321
  Serious: No
  Sender: FDA-Public Use
  Company Number: US-TEVA-387413USA

PATIENT
  Sex: Female

DRUGS (3)
  1. FEMHRT [Concomitant]
     Active Substance: ETHINYL ESTRADIOL\NORETHINDRONE ACETATE
     Dosage: 5/1000 UG
     Route: 048
     Dates: start: 20120615
  2. ESTRACE [Concomitant]
     Active Substance: ESTRADIOL
     Indication: VULVOVAGINAL DRYNESS
     Dosage: .1 PERCENT DAILY;
  3. ESTRADIOL. [Suspect]
     Active Substance: ESTRADIOL
     Indication: VULVOVAGINAL DRYNESS
     Route: 048

REACTIONS (1)
  - Nausea [Unknown]
